FAERS Safety Report 5017553-5 (Version None)
Quarter: 2006Q2

REPORT INFORMATION
  Report Type: 
  Country: None (occurrence: None)
  Receive Date: 20060601
  Receipt Date: 20060601
  Transmission Date: 20061013
  Serious: No
  Sender: FDA-Public Use
  Company Number: None

PATIENT
  Sex: Female
  Weight: 36.2878 kg

DRUGS (1)
  1. FORTEO [Suspect]
     Indication: OSTEOPOROSIS
     Dosage: 20 MCGS  QD SQ
     Route: 058
     Dates: start: 20051101, end: 20060514

REACTIONS (4)
  - BONE DISORDER [None]
  - DYSPHONIA [None]
  - LARYNGEAL DISORDER [None]
  - POLLAKIURIA [None]
